FAERS Safety Report 9725412 (Version 1)
Quarter: 2013Q4

REPORT INFORMATION
  Report Type: Spontaneous
  Country: US (occurrence: None)
  Receive Date: 20131202
  Receipt Date: 20131202
  Transmission Date: 20140711
  Serious: No
  Sender: FDA-Public Use
  Company Number: None

PATIENT
  Age: 58 Year
  Sex: Female
  Weight: 62.6 kg

DRUGS (1)
  1. ROXICET [Suspect]
     Indication: WRIST SURGERY
     Dosage: 1 LIQUID DOSE TAKEN BY MOUTH
     Route: 048
     Dates: start: 20130625, end: 20130625

REACTIONS (4)
  - Dizziness [None]
  - Pruritus [None]
  - Nausea [None]
  - Vomiting [None]
